FAERS Safety Report 10096596 (Version 1)
Quarter: 2014Q2

REPORT INFORMATION
  Report Type: Spontaneous
  Country: US (occurrence: None)
  Receive Date: 20140421
  Receipt Date: 20140421
  Transmission Date: 20141212
  Serious: Yes (Hospitalization)
  Sender: FDA-Public Use
  Company Number: None

PATIENT
  Age: 39 Year
  Sex: Female
  Weight: 125 kg

DRUGS (8)
  1. ODANSETRON [Suspect]
     Indication: NAUSEA
     Route: 042
  2. BUSPIRONE [Concomitant]
  3. ESCITALOPRAM [Concomitant]
  4. LORAZEPAM [Concomitant]
  5. RIZATRIPTAN [Concomitant]
  6. TRAZODONE [Concomitant]
  7. KETOROLAC [Concomitant]
  8. FENTANYL [Concomitant]

REACTIONS (1)
  - Convulsion [None]
